FAERS Safety Report 12214324 (Version 1)
Quarter: 2016Q1

REPORT INFORMATION
  Report Type: Report from Study
  Country: UY (occurrence: UY)
  Receive Date: 20160328
  Receipt Date: 20160328
  Transmission Date: 20160526
  Serious: Yes (Hospitalization)
  Sender: FDA-Public Use
  Company Number: UY-ABBVIE-16K-168-1541416-00

PATIENT
  Age: 60 Year
  Sex: Female

DRUGS (1)
  1. HUMIRA [Suspect]
     Active Substance: ADALIMUMAB
     Indication: RHEUMATOID ARTHRITIS
     Route: 058
     Dates: start: 20151211, end: 20151229

REACTIONS (11)
  - Mechanical ventilation complication [Unknown]
  - Lung infiltration [Unknown]
  - Respiratory failure [Recovering/Resolving]
  - Pneumonia [Recovering/Resolving]
  - Interstitial lung disease [Unknown]
  - Medical induction of coma [Recovered/Resolved]
  - Myopathy [Unknown]
  - Respiratory tract infection [Unknown]
  - Oxygen saturation decreased [Recovering/Resolving]
  - Tracheostomy [Unknown]
  - Pneumonia [Unknown]

NARRATIVE: CASE EVENT DATE: 20151231
